FAERS Safety Report 17091487 (Version 1)
Quarter: 2019Q4

REPORT INFORMATION
  Report Type: Spontaneous
  Country: US (occurrence: US)
  Receive Date: 20191031
  Receipt Date: 20191031
  Transmission Date: 20200122
  Serious: Yes (Life-Threatening)
  Sender: FDA-Public Use
  Company Number: None

PATIENT
  Age: 77 Year
  Sex: Male

DRUGS (1)
  1. PROPOFOL. [Suspect]
     Active Substance: PROPOFOL
     Dates: start: 20190611, end: 20190611

REACTIONS (6)
  - Cardiac arrest [None]
  - Procedural complication [None]
  - Bradycardia [None]
  - Hypotension [None]
  - Pulseless electrical activity [None]
  - Delirium [None]

NARRATIVE: CASE EVENT DATE: 20190611
